FAERS Safety Report 17846111 (Version 1)
Quarter: 2020Q2

REPORT INFORMATION
  Report Type: Other
  Country: DK (occurrence: DK)
  Receive Date: 20200601
  Receipt Date: 20200601
  Transmission Date: 20200714
  Serious: Yes (Hospitalization, Other)
  Sender: FDA-Public Use
  Company Number: DK-EMD SERONO-9165167

PATIENT
  Age: 30 Year
  Sex: Female

DRUGS (2)
  1. GONAL-F [Suspect]
     Active Substance: FOLLITROPIN
     Indication: IN VITRO FERTILISATION
  2. GANIRELIX [Suspect]
     Active Substance: GANIRELIX
     Indication: IN VITRO FERTILISATION

REACTIONS (5)
  - Pulmonary infarction [Unknown]
  - Pulmonary embolism [Unknown]
  - Abortion missed [Recovered/Resolved]
  - Ovarian hyperstimulation syndrome [Recovered/Resolved]
  - Subclavian vein thrombosis [Unknown]
